FAERS Safety Report 6517234-2 (Version None)
Quarter: 2009Q4

REPORT INFORMATION
  Report Type: 
  Country: None (occurrence: None)
  Receive Date: 20091217
  Receipt Date: 20090901
  Transmission Date: 20100525
  Serious: Yes (Other)
  Sender: FDA-Public Use
  Company Number: 654149

PATIENT
  Age: 63 Year
  Sex: Female
  Weight: 58.1 kg

DRUGS (4)
  1. TAMIFLU [Suspect]
     Indication: INFLUENZA
     Dosage: 75 MG 1 PER DAY ORAL
     Route: 048
     Dates: start: 20090727, end: 20090805
  2. FOSAMAX [Concomitant]
  3. VALIUM [Concomitant]
  4. ZOLOFT [Concomitant]

REACTIONS (4)
  - ALANINE AMINOTRANSFERASE INCREASED [None]
  - ASPARTATE AMINOTRANSFERASE INCREASED [None]
  - PHOTOSENSITIVITY REACTION [None]
  - RASH [None]
